FAERS Safety Report 11453181 (Version 1)
Quarter: 2015Q3

REPORT INFORMATION
  Report Type: Spontaneous
  Country: US (occurrence: US)
  Receive Date: 20150831
  Receipt Date: 20150831
  Transmission Date: 20151125
  Serious: No
  Sender: FDA-Public Use
  Company Number: US-ELI_LILLY_AND_COMPANY-US200911001069

PATIENT
  Sex: Male

DRUGS (4)
  1. CYMBALTA [Suspect]
     Active Substance: DULOXETINE HYDROCHLORIDE
     Indication: PAIN
  2. ANALGESICS [Concomitant]
     Active Substance: UNSPECIFIED INGREDIENT
  3. NEURONTIN [Concomitant]
     Active Substance: GABAPENTIN
  4. AVINZA [Concomitant]
     Active Substance: MORPHINE SULFATE

REACTIONS (2)
  - Intentional product misuse [Unknown]
  - Formication [Recovered/Resolved]
